FAERS Safety Report 14534958 (Version 1)
Quarter: 2018Q1

REPORT INFORMATION
  Report Type: Spontaneous
  Country: US (occurrence: US)
  Receive Date: 20180214
  Receipt Date: 20180214
  Transmission Date: 20180509
  Serious: Yes (Disabling)
  Sender: FDA-Public Use
  Company Number: None

PATIENT
  Age: 29 Year
  Sex: Female
  Weight: 74.25 kg

DRUGS (3)
  1. RIFAMPIN 300MG [Suspect]
     Active Substance: RIFAMPIN SODIUM
     Indication: HIDRADENITIS
     Dosage: ?          QUANTITY:2 CAPSULE(S);?
     Route: 048
     Dates: start: 20180101, end: 20180117
  2. ZINC. [Concomitant]
     Active Substance: ZINC
  3. TUMERIC [Concomitant]
     Active Substance: HERBALS\TURMERIC

REACTIONS (5)
  - Dysstasia [None]
  - Ocular icterus [None]
  - Joint swelling [None]
  - Contusion [None]
  - Gait inability [None]

NARRATIVE: CASE EVENT DATE: 20180101
